FAERS Safety Report 5310994-8 (Version None)
Quarter: 2007Q2

REPORT INFORMATION
  Report Type: 
  Country: None (occurrence: None)
  Receive Date: 20070430
  Receipt Date: 20070423
  Transmission Date: 20071010
  Serious: Yes (Death, Other)
  Sender: FDA-Public Use
  Company Number: TW-JNJFOC-20070307264

PATIENT
  Sex: Male

DRUGS (10)
  1. HALOPERIDOL [Suspect]
     Indication: AGITATION
     Route: 042
  2. HALOPERIDOL [Suspect]
     Route: 030
  3. ZUCLOPENTHIXOL [Concomitant]
  4. LORAZEPAM [Concomitant]
  5. FLUOXETINE [Concomitant]
  6. ALPRAZOLAM [Concomitant]
  7. SULPIRIDE [Concomitant]
  8. TRIHEXYPHENIDYL HCL [Concomitant]
  9. VALPROIC ACID [Concomitant]
  10. CLONAZEPAM [Concomitant]

REACTIONS (1)
  - ARRHYTHMIA [None]
